FAERS Safety Report 14642950 (Version 1)
Quarter: 2018Q1

REPORT INFORMATION
  Report Type: Spontaneous
  Country: US (occurrence: US)
  Receive Date: 20180315
  Receipt Date: 20180315
  Transmission Date: 20180509
  Serious: No
  Sender: FDA-Public Use
  Company Number: US-TEVA-2018-US-863076

PATIENT
  Sex: Male

DRUGS (1)
  1. BUSPIRONE [Suspect]
     Active Substance: BUSPIRONE HYDROCHLORIDE
     Indication: ANXIETY
     Dosage: 20 MILLIGRAM DAILY;
     Route: 065
     Dates: start: 20180202

REACTIONS (3)
  - Dizziness [Unknown]
  - Incorrect dosage administered [Unknown]
  - Drug ineffective [Unknown]
